APPROVED DRUG PRODUCT: DARUNAVIR
Active Ingredient: DARUNAVIR
Strength: 800MG
Dosage Form/Route: TABLET;ORAL
Application: A215389 | Product #002 | TE Code: AB
Applicant: MSN LABORATORIES PRIVATE LTD
Approved: Nov 28, 2023 | RLD: No | RS: No | Type: RX